FAERS Safety Report 19081722 (Version 1)
Quarter: 2021Q2

REPORT INFORMATION
  Report Type: Spontaneous
  Country: FR (occurrence: FR)
  Receive Date: 20210401
  Receipt Date: 20210401
  Transmission Date: 20210717
  Serious: Yes (Hospitalization)
  Sender: FDA-Public Use
  Company Number: FR-TEVA-2021-FR-1895469

PATIENT
  Age: 28 Year
  Sex: Male

DRUGS (5)
  1. MDMA [Suspect]
     Active Substance: MIDOMAFETAMINE
     Indication: DRUG ABUSE
     Dosage: UNSPECIFIED
     Route: 065
  2. SERESTA [Suspect]
     Active Substance: OXAZEPAM
     Indication: DRUG ABUSE
     Dosage: 250 MG
     Route: 048
     Dates: start: 20201226, end: 20201227
  3. TRAMADOL (CHLORHYDRATE DE) [Suspect]
     Active Substance: TRAMADOL HYDROCHLORIDE
     Indication: DRUG ABUSE
     Dosage: 200 MG
     Route: 048
     Dates: start: 20201226, end: 20201227
  4. CANNABIS [Suspect]
     Active Substance: CANNABIS SATIVA SUBSP. INDICA TOP
     Indication: DRUG ABUSE
     Dosage: UNSPECIFIED
     Route: 065
  5. COCAINE [Suspect]
     Active Substance: COCAINE
     Indication: DRUG ABUSE
     Dosage: UNSPECIFIED
     Route: 065
     Dates: start: 20201226, end: 20201226

REACTIONS (3)
  - Loss of consciousness [Recovered/Resolved]
  - Drug abuse [Not Recovered/Not Resolved]
  - Vomiting [Recovered/Resolved]

NARRATIVE: CASE EVENT DATE: 20201226
